FAERS Safety Report 6436325-8 (Version None)
Quarter: 2009Q4

REPORT INFORMATION
  Report Type: 
  Country: None (occurrence: None)
  Receive Date: 20091111
  Receipt Date: 20091030
  Transmission Date: 20100525
  Serious: Yes (Other)
  Sender: FDA-Public Use
  Company Number: B0603080A

PATIENT
  Age: 55 Year
  Sex: Female

DRUGS (2)
  1. LAPATINIB [Suspect]
     Route: 065
  2. CAPECITABINE [Concomitant]
     Route: 065

REACTIONS (1)
  - BLOOD BILIRUBIN INCREASED [None]
